FAERS Safety Report 13668751 (Version 1)
Quarter: 2017Q2

REPORT INFORMATION
  Report Type: Spontaneous
  Country: US (occurrence: US)
  Receive Date: 20170620
  Receipt Date: 20170620
  Transmission Date: 20170830
  Serious: No
  Sender: FDA-Public Use
  Company Number: None

PATIENT
  Age: 49 Year
  Sex: Male

DRUGS (1)
  1. OSELTAMIVIR [Suspect]
     Active Substance: OSELTAMIVIR
     Route: 048
     Dates: start: 20170303, end: 20170306

REACTIONS (2)
  - Erythema [None]
  - Swollen tongue [None]

NARRATIVE: CASE EVENT DATE: 20170306
